FAERS Safety Report 10849083 (Version 2)
Quarter: 2021Q2

REPORT INFORMATION
  Report Type: Spontaneous
  Country: US (occurrence: US)
  Receive Date: 20150221
  Receipt Date: 20210420
  Transmission Date: 20210716
  Serious: Yes (Other)
  Sender: FDA-Public Use
  Company Number: US-AUROBINDO-AUR-APL-2015-01358

PATIENT
  Age: 61 Year
  Sex: Female

DRUGS (2)
  1. MEPIVACAINE [Suspect]
     Active Substance: MEPIVACAINE HYDROCHLORIDE
     Indication: LOCAL ANAESTHESIA
     Dosage: 40 MILLILITER
     Route: 065
  2. LIDOCAINE HYDROCHLORIDE INJECTION USP 1%(10 MG/ML) [Suspect]
     Active Substance: LIDOCAINE HYDROCHLORIDE
     Indication: LOCAL ANAESTHESIA
     Dosage: 15 MILLILITER
     Route: 065

REACTIONS (4)
  - Atelectasis [Unknown]
  - Unresponsive to stimuli [Unknown]
  - Respiratory arrest [Unknown]
  - Oxygen saturation decreased [Unknown]
